FAERS Safety Report 13023782 (Version 1)
Quarter: 2016Q4

REPORT INFORMATION
  Report Type: Report from Study
  Country: None (occurrence: FR)
  Receive Date: 20161213
  Receipt Date: 20161213
  Transmission Date: 20170207
  Serious: Yes (Hospitalization)
  Sender: FDA-Public Use
  Company Number: FR-ABBVIE-16K-056-1801192-00

PATIENT
  Age: 67 Year
  Sex: Female

DRUGS (1)
  1. DUODOPA [Suspect]
     Active Substance: CARBIDOPA\LEVODOPA
     Indication: PRODUCT USED FOR UNKNOWN INDICATION
     Dosage: MD:15.5 ML; CDFR:6.7 ML/H, CNFR: 1 ML/H
     Route: 050
     Dates: start: 20161108

REACTIONS (3)
  - Weight decreased [Unknown]
  - General physical health deterioration [Unknown]
  - Dysgeusia [Unknown]

NARRATIVE: CASE EVENT DATE: 2016
